FAERS Safety Report 8456560-7 (Version None)
Quarter: 2012Q2

REPORT INFORMATION
  Report Type: 
  Country: None (occurrence: None)
  Receive Date: 20120621
  Receipt Date: 20120614
  Transmission Date: 20120825
  Serious: Yes (Death)
  Sender: FDA-Public Use
  Company Number: JP-MERCK-1206USA02798

PATIENT
  Age: 76 Year
  Sex: Male

DRUGS (6)
  1. BOFU-TSUSHO-SAN [Concomitant]
     Route: 065
     Dates: start: 20120517
  2. MAGMITT [Concomitant]
     Route: 065
     Dates: start: 20120517
  3. PANTOL [Concomitant]
     Route: 065
     Dates: start: 20120517
  4. DUTASTERIDE [Concomitant]
     Route: 065
  5. URIEF [Concomitant]
     Route: 065
  6. JANUVIA [Suspect]
     Indication: TYPE 2 DIABETES MELLITUS
     Route: 048
     Dates: start: 20120517, end: 20120525

REACTIONS (1)
  - SUDDEN DEATH [None]
